FAERS Safety Report 11964491 (Version 3)
Quarter: 2016Q4

REPORT INFORMATION
  Report Type: Report from Study
  Country: CA (occurrence: CA)
  Receive Date: 20160126
  Receipt Date: 20161212
  Transmission Date: 20170206
  Serious: Yes (Other)
  Sender: FDA-Public Use
  Company Number: CA-ROCHE-1218153

PATIENT
  Sex: Female
  Weight: 50 kg

DRUGS (6)
  1. LYRICA [Concomitant]
     Active Substance: PREGABALIN
     Indication: PRODUCT USED FOR UNKNOWN INDICATION
     Route: 065
  2. AMOXIL [Concomitant]
     Active Substance: AMOXICILLIN
     Route: 065
  3. ACTEMRA [Suspect]
     Active Substance: TOCILIZUMAB
     Route: 042
     Dates: start: 20130115
  4. METHOTREXATE. [Concomitant]
     Active Substance: METHOTREXATE
     Indication: PRODUCT USED FOR UNKNOWN INDICATION
     Route: 065
  5. ACTEMRA [Suspect]
     Active Substance: TOCILIZUMAB
     Indication: RHEUMATOID ARTHRITIS
     Route: 042
     Dates: start: 20120911
  6. NAPROXEN. [Concomitant]
     Active Substance: NAPROXEN
     Indication: PRODUCT USED FOR UNKNOWN INDICATION
     Route: 065

REACTIONS (7)
  - Chronic obstructive pulmonary disease [Not Recovered/Not Resolved]
  - Nasopharyngitis [Recovering/Resolving]
  - Bronchitis [Recovered/Resolved]
  - Tooth infection [Unknown]
  - Tendon rupture [Not Recovered/Not Resolved]
  - Weight decreased [Unknown]
  - Lower respiratory tract congestion [Recovering/Resolving]

NARRATIVE: CASE EVENT DATE: 2013
